FAERS Safety Report 6803602-8 (Version None)
Quarter: 2010Q2

REPORT INFORMATION
  Report Type: 
  Country: None (occurrence: None)
  Receive Date: 20100628
  Receipt Date: 20100616
  Transmission Date: 20101027
  Serious: Yes (Other)
  Sender: FDA-Public Use
  Company Number: DE-PFIZER INC-2010062872

PATIENT
  Age: 54 Year
  Sex: Male
  Weight: 95 kg

DRUGS (1)
  1. LYRICA [Suspect]
     Indication: PARAESTHESIA
     Dosage: UNK
     Route: 048
     Dates: start: 20100401

REACTIONS (9)
  - BLOOD PRESSURE FLUCTUATION [None]
  - DIARRHOEA [None]
  - DIPLOPIA [None]
  - DRY EYE [None]
  - ERECTILE DYSFUNCTION [None]
  - PARAESTHESIA [None]
  - SPUTUM RETENTION [None]
  - TACHYARRHYTHMIA [None]
  - VISUAL ACUITY REDUCED [None]
